FAERS Safety Report 16723204 (Version 1)
Quarter: 2019Q3

REPORT INFORMATION
  Report Type: Spontaneous
  Country: US (occurrence: US)
  Receive Date: 20190821
  Receipt Date: 20190821
  Transmission Date: 20191005
  Serious: Yes (Other)
  Sender: FDA-Public Use
  Company Number: US-HIKMA PHARMACEUTICALS USA INC.-US-H14001-19-46625

PATIENT
  Age: 63 Year
  Sex: Female

DRUGS (1)
  1. CEFUROXIME. [Suspect]
     Active Substance: CEFUROXIME
     Indication: CATARACT OPERATION
     Dosage: 1 MG/ 0.1 ML
     Route: 031

REACTIONS (3)
  - Cystoid macular oedema [Recovered/Resolved]
  - Visual acuity reduced [Recovered/Resolved]
  - Serous retinal detachment [Recovered/Resolved]
